FAERS Safety Report 7581881-X (Version None)
Quarter: 2011Q2

REPORT INFORMATION
  Report Type: 
  Country: None (occurrence: None)
  Receive Date: 20110629
  Receipt Date: 20101126
  Transmission Date: 20111010
  Serious: Yes (Death, Hospitalization)
  Sender: FDA-Public Use
  Company Number: PHHY2010JP03778

PATIENT
  Sex: Male
  Weight: 59 kg

DRUGS (12)
  1. CLIDAMICIN [Concomitant]
     Dosage: 1800 MG, UNK
     Dates: start: 20090714, end: 20090721
  2. EXJADE [Suspect]
     Indication: IRON OVERLOAD
     Dosage: 1000 MG/DAY
     Route: 048
     Dates: start: 20090219, end: 20090708
  3. EXJADE [Suspect]
     Dosage: 1000 MG, UNK
     Dates: start: 20090805, end: 20090818
  4. HYDREA [Concomitant]
     Indication: ESSENTIAL THROMBOCYTHAEMIA
     Dosage: 1000 MG,
     Route: 048
     Dates: start: 20090219, end: 20090708
  5. LUCENTIS [Concomitant]
  6. CEFMETAZON [Concomitant]
     Dosage: 6 G, UNK
     Dates: start: 20090708, end: 20090713
  7. CIPROFLOXACIN HCL [Concomitant]
     Dosage: 600 MG, UNK
     Dates: start: 20090714, end: 20090721
  8. GENTACIN [Concomitant]
     Dosage: 240 MG, UNK
     Dates: start: 20090709, end: 20090710
  9. HYDREA [Concomitant]
     Dosage: 1000 MG, UNK
     Route: 048
     Dates: start: 20090805
  10. EXJADE [Suspect]
     Dosage: 1500 MG/DAY
     Route: 048
     Dates: start: 20090819
  11. RED BLOOD CELLS, CONCENTRATED [Concomitant]
     Dosage: 4 UNITS EVERY WEEK
     Dates: start: 20090218, end: 20090324
  12. RED BLOOD CELLS, CONCENTRATED [Concomitant]
     Dosage: 4 UNITS EVERY 2 WEEKS
     Dates: start: 20090325

REACTIONS (5)
  - SEPTIC SHOCK [None]
  - SALMONELLA SEPSIS [None]
  - SERUM FERRITIN INCREASED [None]
  - HEPATIC FUNCTION ABNORMAL [None]
  - DRUG INEFFECTIVE [None]
